FAERS Safety Report 11255475 (Version 1)
Quarter: 2015Q3

REPORT INFORMATION
  Report Type: Spontaneous
  Country: US (occurrence: US)
  Receive Date: 20150709
  Receipt Date: 20150709
  Transmission Date: 20151125
  Serious: No
  Sender: FDA-Public Use
  Company Number: US-TAKEDA-2012-05659

PATIENT
  Age: 61 Year
  Sex: Male
  Weight: 168.6 kg

DRUGS (3)
  1. DEXAMETHASONE. [Concomitant]
     Active Substance: DEXAMETHASONE
     Indication: PRODUCT USED FOR UNKNOWN INDICATION
  2. VELCADE [Suspect]
     Active Substance: BORTEZOMIB
     Indication: PLASMA CELL MYELOMA
     Dosage: 2.47 MG, UNK
     Route: 058
     Dates: start: 20120723
  3. VELCADE [Suspect]
     Active Substance: BORTEZOMIB
     Dosage: 2.44 MG, UNK
     Route: 058
     Dates: start: 20120806

REACTIONS (2)
  - Oedema peripheral [Unknown]
  - Back pain [Unknown]

NARRATIVE: CASE EVENT DATE: 20120723
